FAERS Safety Report 21448086 (Version 1)
Quarter: 2022Q4

REPORT INFORMATION
  Report Type: Spontaneous
  Country: US (occurrence: None)
  Receive Date: 20221011
  Receipt Date: 20221011
  Transmission Date: 20230112
  Serious: Yes (Hospitalization, Other)
  Sender: FDA-Public Use
  Company Number: None

PATIENT
  Age: 34 Year
  Sex: Female

DRUGS (4)
  1. SUMATRIPTAN [Suspect]
     Active Substance: SUMATRIPTAN
     Indication: Migraine
     Dosage: FREQUENCY : AS NEEDED;?
     Route: 048
     Dates: start: 201609
  2. TYLENOL EXTRA STRENGTH [Suspect]
     Active Substance: ACETAMINOPHEN
     Indication: Migraine
     Dosage: FREQUENCY : AS NEEDED;?
     Route: 048
  3. VITAMINS [Concomitant]
     Active Substance: VITAMINS
  4. MAKENA [Concomitant]
     Active Substance: HYDROXYPROGESTERONE CAPROATE

REACTIONS (2)
  - Exposure during pregnancy [None]
  - Cervix disorder [None]

NARRATIVE: CASE EVENT DATE: 20220906
